FAERS Safety Report 25450306 (Version 1)
Quarter: 2025Q2

REPORT INFORMATION
  Report Type: Spontaneous
  Country: US (occurrence: US)
  Receive Date: 20250618
  Receipt Date: 20250618
  Transmission Date: 20250716
  Serious: Yes (Other)
  Sender: ACCORD
  Company Number: US-MLMSERVICE-20250602-PI530614-00082-1

PATIENT
  Age: 60 Year
  Sex: Female

DRUGS (5)
  1. CARBOPLATIN [Suspect]
     Active Substance: CARBOPLATIN
     Indication: Lung adenocarcinoma stage IV
  2. PEMETREXED DISODIUM [Suspect]
     Active Substance: PEMETREXED DISODIUM
     Indication: Lung adenocarcinoma stage IV
  3. CYCLOSPORINE [Concomitant]
     Active Substance: CYCLOSPORINE
  4. EVEROLIMUS [Concomitant]
     Active Substance: EVEROLIMUS
  5. PREDNISONE [Concomitant]
     Active Substance: PREDNISONE

REACTIONS (4)
  - Pancytopenia [Unknown]
  - Acute kidney injury [Unknown]
  - Pleural effusion [Unknown]
  - Off label use [Unknown]
